FAERS Safety Report 8124278-6 (Version None)
Quarter: 2012Q1

REPORT INFORMATION
  Report Type: 
  Country: None (occurrence: None)
  Receive Date: 20120209
  Receipt Date: 20120206
  Transmission Date: 20120608
  Serious: Yes (Other)
  Sender: FDA-Public Use
  Company Number: US-PFIZER INC-2012033313

PATIENT
  Sex: Male
  Weight: 163 kg

DRUGS (17)
  1. GEMFIBROZIL [Concomitant]
     Dosage: 600 MG, 2X/DAY
  2. DICLOFENAC SODIUM [Concomitant]
     Dosage: 75 MG, 2X/DAY
  3. LANTUS [Concomitant]
     Dosage: 100 IU, DAILY
  4. SUMATRIPTAN [Concomitant]
     Dosage: 100 MG, AS NEEDED
  5. CARVEDILOL [Concomitant]
     Dosage: 25 MG, DAILY
  6. CLONAZEPAM [Concomitant]
     Dosage: 2 MG, 2X/DAY
  7. PRAMIPEXOLE [Concomitant]
     Dosage: 1 MG, 2-3 TABLETS AT NIGHT
  8. CHANTIX [Suspect]
     Dosage: UNK
     Dates: start: 20120101
  9. NOVOLOG [Concomitant]
     Dosage: 100 IU, 3X/DAY
  10. WELLBUTRIN [Concomitant]
     Dosage: 150 MG, 3X/DAY
  11. METFORMIN [Concomitant]
     Dosage: 1000 MG, 2X/DAY
  12. SIMVASTATIN [Concomitant]
     Dosage: 40 MG, DAILY
  13. CHANTIX [Suspect]
     Indication: SMOKING CESSATION THERAPY
     Dosage: 0.5 MG, UNK
     Dates: start: 20120105
  14. MISOPROSTOL [Concomitant]
     Dosage: 200 MG, 4X/DAY
  15. PROPRANOLOL [Concomitant]
     Dosage: 40 MG, 2X/DAY
  16. SPIRONOLACTONE [Concomitant]
     Dosage: 25 MG, 2X/DAY
  17. REQUIP [Concomitant]
     Dosage: 2 MG, DAILY

REACTIONS (5)
  - BRONCHITIS [None]
  - DYSPNOEA [None]
  - COUGH [None]
  - RESPIRATORY TRACT CONGESTION [None]
  - LUNG DISORDER [None]
